FAERS Safety Report 9147143 (Version 7)
Quarter: 2015Q2

REPORT INFORMATION
  Report Type: Report from Study
  Country: BR (occurrence: BR)
  Receive Date: 20130307
  Receipt Date: 20150505
  Transmission Date: 20150821
  Serious: Yes (Hospitalization, Other)
  Sender: FDA-Public Use
  Company Number: BR-ROCHE-757360

PATIENT
  Age: 52 Year
  Sex: Female
  Weight: 56 kg

DRUGS (22)
  1. MABTHERA [Suspect]
     Active Substance: RITUXIMAB
     Route: 042
     Dates: start: 20100328, end: 20100413
  2. MABTHERA [Suspect]
     Active Substance: RITUXIMAB
     Dosage: IN FEB/2012 TWO INFUSIONS
     Route: 042
  3. SELOZOK [Concomitant]
     Active Substance: METOPROLOL SUCCINATE
  4. RIVOTRIL [Concomitant]
     Active Substance: CLONAZEPAM
     Route: 065
  5. DIOVAN [Concomitant]
     Active Substance: VALSARTAN
     Route: 065
  6. LIMBITROL [Concomitant]
     Active Substance: AMITRIPTYLINE\CHLORDIAZEPOXIDE
     Route: 065
  7. DORFLEX [Concomitant]
     Active Substance: CAFFEINE\DIPYRONE\ORPHENADRINE
     Indication: HEADACHE
     Dosage: FREQ: PRN
     Route: 065
  8. FOLIC ACID. [Concomitant]
     Active Substance: FOLIC ACID
  9. MABTHERA [Suspect]
     Active Substance: RITUXIMAB
     Dosage: IN JUN/2011 TWO INFUSIONS
     Route: 042
  10. MABTHERA [Suspect]
     Active Substance: RITUXIMAB
     Dosage: TWO INFUSIONS
     Route: 042
  11. ANGIPRESS (BRAZIL) [Concomitant]
     Indication: HYPERTENSION
     Route: 065
  12. CEFALIV [Concomitant]
     Indication: HEADACHE
     Dosage: FREQ: PRN.
     Route: 065
  13. MABTHERA [Suspect]
     Active Substance: RITUXIMAB
     Dosage: TWO INFUSIONS
     Route: 042
  14. PROCIMAX [Suspect]
     Active Substance: CITALOPRAM HYDROBROMIDE
     Indication: PRODUCT USED FOR UNKNOWN INDICATION
     Route: 065
  15. METHOTREXATE [Concomitant]
     Active Substance: METHOTREXATE
     Route: 065
  16. MABTHERA [Suspect]
     Active Substance: RITUXIMAB
     Dosage: TWO INFUSIONS
     Route: 042
  17. DIOVAN [Concomitant]
     Active Substance: VALSARTAN
     Route: 065
  18. VIMOVO [Concomitant]
     Active Substance: ESOMEPRAZOLE MAGNESIUM\NAPROXEN
  19. MABTHERA [Suspect]
     Active Substance: RITUXIMAB
     Indication: RHEUMATOID ARTHRITIS
     Dosage: PATIENT RECEIVED LAST RITUXIMAB CYCLE ON 10/SEP/2013 AND 25/SEP/2013
     Route: 042
  20. MABTHERA [Suspect]
     Active Substance: RITUXIMAB
     Dosage: TWO INFUSIONS
     Route: 042
  21. CORTICORTEN [Concomitant]
     Route: 065
  22. PRELONE [Concomitant]
     Active Substance: PREDNISOLONE
     Indication: HYPERTENSION
     Route: 065

REACTIONS (16)
  - Blood pressure increased [Unknown]
  - Osteoarthritis [Recovered/Resolved]
  - Thrombosis [Not Recovered/Not Resolved]
  - Leprosy [Recovered/Resolved]
  - Headache [Not Recovered/Not Resolved]
  - Osteoarthritis [Recovering/Resolving]
  - Sinusitis [Unknown]
  - Back pain [Not Recovered/Not Resolved]
  - Pain [Not Recovered/Not Resolved]
  - Arthralgia [Unknown]
  - Arthropathy [Not Recovered/Not Resolved]
  - Rheumatoid arthritis [Not Recovered/Not Resolved]
  - Herpes simplex [Recovered/Resolved]
  - Meniscus injury [Recovered/Resolved]
  - Fall [Unknown]
  - Blood pressure increased [Recovered/Resolved]

NARRATIVE: CASE EVENT DATE: 2010
